FAERS Safety Report 24780140 (Version 1)
Quarter: 2024Q4

REPORT INFORMATION
  Report Type: Spontaneous
  Country: ES (occurrence: ES)
  Receive Date: 20241227
  Receipt Date: 20241227
  Transmission Date: 20250115
  Serious: Yes (Life-Threatening, Hospitalization)
  Sender: ELI LILLY AND COMPANY
  Company Number: None

PATIENT
  Age: 42 Year
  Sex: Female

DRUGS (1)
  1. MOUNJARO [Suspect]
     Active Substance: TIRZEPATIDE
     Indication: Weight control
     Dosage: 10 MG, WEEKLY (1/W)
     Route: 058
     Dates: start: 20240924, end: 20241121

REACTIONS (3)
  - Septic shock [Recovered/Resolved]
  - Rash pruritic [Recovered/Resolved]
  - Administration site rash [Recovered/Resolved]

NARRATIVE: CASE EVENT DATE: 20241121
